FAERS Safety Report 18284326 (Version 1)
Quarter: 2020Q3

REPORT INFORMATION
  Report Type: Report from Study
  Country: US (occurrence: US)
  Receive Date: 20200918
  Receipt Date: 20200918
  Transmission Date: 20201103
  Serious: Yes (Hospitalization)
  Sender: FDA-Public Use
  Company Number: US-JNJFOC-A-US2016-131874

PATIENT
  Age: 77 Year
  Sex: Female
  Weight: 63.04 kg

DRUGS (11)
  1. CHOLECALCIFEROL [Concomitant]
     Active Substance: CHOLECALCIFEROL
     Route: 048
  2. VELETRI [Suspect]
     Active Substance: EPOPROSTENOL
     Dosage: 52 NG/KG, PER MIN
     Route: 042
     Dates: start: 20110616
  3. VELETRI [Suspect]
     Active Substance: EPOPROSTENOL
     Indication: PULMONARY ARTERIAL HYPERTENSION
     Dosage: 52 NG/KG, PER MIN
     Route: 042
     Dates: start: 20110616
  4. HYDROXYCHLOROQUINE [Concomitant]
     Active Substance: HYDROXYCHLOROQUINE
     Indication: SYSTEMIC LUPUS ERYTHEMATOSUS
  5. FUROSEMIDE. [Concomitant]
     Active Substance: FUROSEMIDE
     Route: 048
  6. COUMADIN [Concomitant]
     Active Substance: WARFARIN SODIUM
  7. ADCIRCA [Concomitant]
     Active Substance: TADALAFIL
  8. ATORVASTATIN [Concomitant]
     Active Substance: ATORVASTATIN
  9. VELETRI [Suspect]
     Active Substance: EPOPROSTENOL
     Dosage: UNK
     Route: 042
  10. PERCOCET [Concomitant]
     Active Substance: ACETAMINOPHEN\OXYCODONE HYDROCHLORIDE
     Indication: SYSTEMIC LUPUS ERYTHEMATOSUS
     Dosage: 5MG?335MG 1 TABLET PO 2X DAY/AS NEEDED FOR PAIN
     Route: 048
  11. ALLOPURINOL. [Concomitant]
     Active Substance: ALLOPURINOL
     Indication: GOUT
     Route: 048

REACTIONS (32)
  - Pulmonary hypertension [Unknown]
  - Chapped lips [Unknown]
  - Musculoskeletal discomfort [Unknown]
  - Cough [Not Recovered/Not Resolved]
  - Productive cough [Unknown]
  - Asthenia [Unknown]
  - Gait inability [Unknown]
  - Device issue [Unknown]
  - Nasopharyngitis [Recovering/Resolving]
  - Pain in jaw [Unknown]
  - Weight decreased [Unknown]
  - Stent placement [Unknown]
  - Dyspnoea exertional [Unknown]
  - Product dose omission issue [Unknown]
  - Fatigue [Unknown]
  - Drug delivery system malfunction [Recovered/Resolved]
  - Product administration interrupted [Recovered/Resolved]
  - Joint injury [Unknown]
  - Gait disturbance [Unknown]
  - Arthritis [Unknown]
  - Joint swelling [Recovering/Resolving]
  - Device alarm issue [Unknown]
  - Decreased appetite [Unknown]
  - Hypotension [Recovered/Resolved]
  - Fall [Unknown]
  - Catheter management [Unknown]
  - Frequent bowel movements [Unknown]
  - Dyspepsia [Unknown]
  - Arthralgia [Not Recovered/Not Resolved]
  - Infection [Unknown]
  - Device occlusion [Recovered/Resolved]
  - Diarrhoea [Unknown]
